FAERS Safety Report 5958724-0 (Version None)
Quarter: 2008Q4

REPORT INFORMATION
  Report Type: 
  Country: None (occurrence: None)
  Receive Date: 20081119
  Receipt Date: 20081114
  Transmission Date: 20090506
  Serious: Yes (Other)
  Sender: FDA-Public Use
  Company Number: US-ROXANE LABORATORIES, INC.-2008-RO-00233RO

PATIENT
  Age: 51 Year
  Sex: Female

DRUGS (7)
  1. OXCARBAZEPINE [Suspect]
     Indication: MANIA
  2. OXCARBAZEPINE [Suspect]
     Dosage: 600MG
  3. VALPROATE SODIUM [Suspect]
     Dosage: 3000MG
  4. VALPROATE SODIUM [Suspect]
     Dosage: 2000MG
  5. CLONAZEPAM [Suspect]
     Dosage: 3MG
  6. GLUCOPHAGE [Suspect]
     Dosage: 1000MG
  7. QUETIAPINE FUMARATE [Concomitant]

REACTIONS (7)
  - ATAXIA [None]
  - CATATONIA [None]
  - CONFUSIONAL STATE [None]
  - DRUG INTERACTION [None]
  - DRUG TOXICITY [None]
  - INCONTINENCE [None]
  - OEDEMA PERIPHERAL [None]
